FAERS Safety Report 9381325 (Version 1)
Quarter: 2013Q3

REPORT INFORMATION
  Report Type: Report from Study
  Country: US (occurrence: US)
  Receive Date: 20130703
  Receipt Date: 20130703
  Transmission Date: 20140515
  Serious: Yes (Hospitalization)
  Sender: FDA-Public Use
  Company Number: US-JNJFOC-20130618681

PATIENT
  Age: 15 Year
  Sex: Male
  Weight: 68.8 kg

DRUGS (11)
  1. REMICADE [Suspect]
     Indication: INFLAMMATORY BOWEL DISEASE
     Route: 042
     Dates: start: 20110118
  2. VITAMIN D [Suspect]
     Indication: PRODUCT USED FOR UNKNOWN INDICATION
     Route: 065
  3. VITAMIN D [Suspect]
     Indication: PRODUCT USED FOR UNKNOWN INDICATION
     Route: 065
  4. FERREX [Concomitant]
     Route: 065
  5. PRISTIQ [Concomitant]
     Route: 065
  6. ALIGN NOS [Concomitant]
     Route: 065
  7. RITALIN [Concomitant]
     Route: 065
  8. CLONIDINE [Concomitant]
     Route: 065
  9. ALLEGRA [Concomitant]
     Route: 065
  10. DOCOSAHEXAENOIC ACID [Concomitant]
     Route: 065
  11. PREVACID [Concomitant]
     Route: 065

REACTIONS (1)
  - Pancreatitis acute [Recovered/Resolved]
